FAERS Safety Report 5259467-1 (Version None)
Quarter: 2007Q1

REPORT INFORMATION
  Report Type: 
  Country: None (occurrence: None)
  Receive Date: 20070305
  Receipt Date: 20070223
  Transmission Date: 20070707
  Serious: No
  Sender: FDA-Public Use
  Company Number: 237414

PATIENT
  Age: 44 Year
  Sex: Female
  Weight: 90.7 kg

DRUGS (17)
  1. XOLAIR [Suspect]
     Indication: ASTHMA
     Dosage: 300 MG, Q4W, SUBCUTANEOUS
     Route: 058
     Dates: start: 20070201
  2. ADVAIR DISKUS 100/50 [Concomitant]
  3. DUONEB (ALBUTEROL, ALBUTEROL SULFATE, IPRATROPIUM BROMIDE) [Concomitant]
  4. PULMICORT RESPULES [Concomitant]
  5. ALBUTEROL (ALBUTEROL/ALBUTEROL SULFATE) [Concomitant]
  6. METFORMIN HCL [Concomitant]
  7. LIPITOR [Concomitant]
  8. SINGULAIR [Concomitant]
  9. THEO-24 (THEOPHYLLINE) [Concomitant]
  10. ALLEGRA [Concomitant]
  11. ZYRTEC [Concomitant]
  12. DOXEPIN (DOXEPIN HYDROCHLORIDE) [Concomitant]
  13. VITAMIN B12 [Concomitant]
  14. IRON (IRON NOS) [Concomitant]
  15. PATANOL [Concomitant]
  16. FLONASE [Concomitant]
  17. ASTELIN [Concomitant]

REACTIONS (2)
  - DYSPNOEA [None]
  - SKIN LESION [None]
